FAERS Safety Report 11353302 (Version 1)
Quarter: 2015Q3

REPORT INFORMATION
  Report Type: Spontaneous
  Country: US (occurrence: US)
  Receive Date: 20150807
  Receipt Date: 20150807
  Transmission Date: 20151125
  Serious: No
  Sender: FDA-Public Use
  Company Number: US-BAYER-2015-395443

PATIENT
  Sex: Female

DRUGS (1)
  1. CLARITIN [Suspect]
     Active Substance: LORATADINE
     Indication: PRURITUS
     Dosage: 1 DF, ONCE
     Route: 048
     Dates: start: 201508, end: 201508

REACTIONS (1)
  - Product use issue [None]

NARRATIVE: CASE EVENT DATE: 20150803
